FAERS Safety Report 6601741-8 (Version None)
Quarter: 2010Q1

REPORT INFORMATION
  Report Type: 
  Country: None (occurrence: None)
  Receive Date: 20100225
  Receipt Date: 20081216
  Transmission Date: 20100710
  Serious: No
  Sender: FDA-Public Use
  Company Number: US-BRISTOL-MYERS SQUIBB COMPANY-14417406

PATIENT
  Age: 54 Year
  Sex: Male

DRUGS (2)
  1. ORENCIA [Suspect]
     Indication: RHEUMATOID ARTHRITIS
     Dosage: FIRST INFUSION ON 24SEP08 FOLLOWED BY 07OCT08, 24OCT08
     Route: 042
     Dates: start: 20080924
  2. ARTHROTEC [Concomitant]
     Route: 048

REACTIONS (1)
  - HERPES ZOSTER [None]
